FAERS Safety Report 17877875 (Version 8)
Quarter: 2020Q4

REPORT INFORMATION
  Report Type: Report from Study
  Country: CA (occurrence: CA)
  Receive Date: 20200609
  Receipt Date: 20201224
  Transmission Date: 20210113
  Serious: Yes (Hospitalization, Other)
  Sender: FDA-Public Use
  Company Number: PHHY2014CA155187

PATIENT
  Age: 64 Year
  Sex: Male

DRUGS (7)
  1. SANDOSTATIN [Suspect]
     Active Substance: OCTREOTIDE ACETATE
     Indication: NEUROENDOCRINE TUMOUR
     Dosage: UNK, ONCE/SINGLE (0 UG)
     Route: 058
     Dates: start: 20141106, end: 20141106
  2. SANDOSTATIN [Suspect]
     Active Substance: OCTREOTIDE ACETATE
  3. SANDOSTATIN LAR DEPOT [Suspect]
     Active Substance: OCTREOTIDE ACETATE
  4. LUTETIUM (LU 177) [Concomitant]
     Active Substance: LUTETIUM LU-177
     Indication: PRODUCT USED FOR UNKNOWN INDICATION
     Dosage: UNK
     Route: 065
  5. SANDOSTATIN LAR DEPOT [Suspect]
     Active Substance: OCTREOTIDE ACETATE
  6. SANDOSTATIN LAR DEPOT [Suspect]
     Active Substance: OCTREOTIDE ACETATE
     Indication: NEUROENDOCRINE TUMOUR
     Dosage: 30 MG, QMO (EVERY 4 WEEK)
     Route: 030
     Dates: start: 20141124
  7. SANDOSTATIN [Suspect]
     Active Substance: OCTREOTIDE ACETATE

REACTIONS (26)
  - Blood urine present [Unknown]
  - Malignant neoplasm progression [Unknown]
  - Blood glucose increased [Recovering/Resolving]
  - Metastases to bone [Unknown]
  - Musculoskeletal chest pain [Unknown]
  - Heart rate decreased [Unknown]
  - Asthenia [Unknown]
  - Metastases to liver [Unknown]
  - Heart valve incompetence [Unknown]
  - Back pain [Unknown]
  - Weight decreased [Unknown]
  - Jaundice [Not Recovered/Not Resolved]
  - Metastases to lymph nodes [Unknown]
  - Pyrexia [Recovering/Resolving]
  - Chest pain [Recovering/Resolving]
  - Biliary obstruction [Unknown]
  - Urinary retention [Unknown]
  - Oedema [Unknown]
  - Neuroendocrine tumour [Unknown]
  - Recurrent cancer [Unknown]
  - Mobility decreased [Unknown]
  - Blood pressure increased [Unknown]
  - Abdominal pain lower [Unknown]
  - Blood pressure systolic increased [Unknown]
  - Body temperature decreased [Unknown]
  - Arthralgia [Recovering/Resolving]

NARRATIVE: CASE EVENT DATE: 20141124
